FAERS Safety Report 9005184 (Version 1)
Quarter: 2013Q1

REPORT INFORMATION
  Report Type: Spontaneous
  Country: US (occurrence: US)
  Receive Date: 20130108
  Receipt Date: 20130108
  Transmission Date: 20140127
  Serious: Yes (Death)
  Sender: FDA-Public Use
  Company Number: US-ASTRAZENECA-2013SE00870

PATIENT
  Sex: Male

DRUGS (1)
  1. SYMBICORT [Suspect]
     Dosage: 160/4.5 MCG, UNKNOWN
     Route: 055

REACTIONS (1)
  - Death [Fatal]
